FAERS Safety Report 5732512-2 (Version None)
Quarter: 2008Q2

REPORT INFORMATION
  Report Type: 
  Country: None (occurrence: None)
  Receive Date: 20080508
  Receipt Date: 20080501
  Transmission Date: 20081010
  Serious: Yes (Other)
  Sender: FDA-Public Use
  Company Number: US-MERCK-0804USA01554

PATIENT
  Age: 6 Year
  Sex: Female
  Weight: 28 kg

DRUGS (6)
  1. SINGULAIR [Suspect]
     Indication: ASTHMA
     Route: 048
     Dates: start: 20070901, end: 20080301
  2. SINGULAIR [Suspect]
     Indication: HYPERSENSITIVITY
     Route: 048
     Dates: start: 20070901, end: 20080301
  3. FLOVENT [Concomitant]
  4. PULMICORT [Concomitant]
  5. PREVACID [Concomitant]
     Route: 065
  6. XOPENEX [Concomitant]
     Dates: start: 20061027, end: 20080330

REACTIONS (4)
  - AGGRESSION [None]
  - ANGER [None]
  - SELF-INJURIOUS IDEATION [None]
  - SUICIDAL IDEATION [None]
